FAERS Safety Report 4816751-0 (Version None)
Quarter: 2005Q4

REPORT INFORMATION
  Report Type: 
  Country: None (occurrence: None)
  Receive Date: 20051028
  Receipt Date: 20051017
  Transmission Date: 20060501
  Serious: Yes (Other)
  Sender: FDA-Public Use
  Company Number: 2005143121

PATIENT
  Age: 56 Year
  Sex: Female

DRUGS (9)
  1. ZOLOFT [Suspect]
     Indication: ILL-DEFINED DISORDER
     Dates: start: 20040801
  2. PAROXETINE HCL [Concomitant]
     Indication: ANXIETY
     Dosage: 40 MG (20 MG, 1 IN 1D), ORAL
     Route: 048
     Dates: start: 20040901
  3. PAROXETINE HCL [Concomitant]
     Indication: DEPRESSION
     Dosage: 40 MG (20 MG, 1 IN 1D), ORAL
     Route: 048
     Dates: start: 20040901
  4. LORAZEPAM [Concomitant]
  5. TRAZODONE HCL [Concomitant]
  6. BUPROPION HCL [Concomitant]
  7. HYDROCHLOROTHIAZIDE (HYDROCHLOROTHIAZIDE0 [Concomitant]
  8. METFORMIN HCL [Concomitant]
  9. LIPITOR [Concomitant]

REACTIONS (6)
  - DIZZINESS [None]
  - FALL [None]
  - FRACTURED COCCYX [None]
  - HALLUCINATION, AUDITORY [None]
  - HALLUCINATION, VISUAL [None]
  - PAIN [None]
